FAERS Safety Report 23225126 (Version 1)
Quarter: 2023Q4

REPORT INFORMATION
  Report Type: Spontaneous
  Country: GR (occurrence: GR)
  Receive Date: 20231124
  Receipt Date: 20231124
  Transmission Date: 20240110
  Serious: Yes (Disabling)
  Sender: FDA-Public Use
  Company Number: None

PATIENT
  Age: 72 Year
  Sex: Female
  Weight: 60 kg

DRUGS (6)
  1. ATORVASTATIN [Suspect]
     Active Substance: ATORVASTATIN
     Indication: Product used for unknown indication
     Dosage: UNIT DOSE:5MG,THERAPY END DATE:NASK
     Dates: start: 20211102
  2. ATORVASTATIN [Suspect]
     Active Substance: ATORVASTATIN
     Dosage: UNIT DOSE:10MG,THERAPY END DATE:NASK
     Dates: start: 20211102
  3. ROSUVASTATIN [Suspect]
     Active Substance: ROSUVASTATIN
     Indication: Product used for unknown indication
     Dosage: UNIT DOSE:10MG,THERAPY END DATE:NASK
     Dates: start: 20211102
  4. ROSUVASTATIN [Suspect]
     Active Substance: ROSUVASTATIN
     Dates: start: 20211102
  5. EZETIMIBE [Suspect]
     Active Substance: EZETIMIBE
     Indication: Product used for unknown indication
     Dosage: THERAPY END DATE:NASK, UNIT DOSE:5MG
     Dates: start: 20211102
  6. EZETIMIBE [Suspect]
     Active Substance: EZETIMIBE
     Dosage: UNIT DOSE:10MG,THERAPY END DATE:NASK
     Dates: start: 20211102

REACTIONS (2)
  - Pruritus [Recovered/Resolved]
  - Myalgia [Recovered/Resolved]

NARRATIVE: CASE EVENT DATE: 20181105
